FAERS Safety Report 7965150-1 (Version None)
Quarter: 2011Q4

REPORT INFORMATION
  Report Type: 
  Country: None (occurrence: None)
  Receive Date: 20111208
  Receipt Date: 20111116
  Transmission Date: 20120403
  Serious: No
  Sender: FDA-Public Use
  Company Number: US-BAYER-2011-111666

PATIENT
  Age: 18 Year
  Sex: Female

DRUGS (1)
  1. ALEVE (CAPLET) [Suspect]
     Dosage: 2 UNITS
     Route: 048

REACTIONS (3)
  - DISORIENTATION [None]
  - BLOOD PRESSURE DECREASED [None]
  - FEELING COLD [None]
